FAERS Safety Report 18016518 (Version 4)
Quarter: 2021Q3

REPORT INFORMATION
  Report Type: Spontaneous
  Country: US (occurrence: US)
  Receive Date: 20200714
  Receipt Date: 20210901
  Transmission Date: 20211014
  Serious: Yes (Other)
  Sender: FDA-Public Use
  Company Number: US-ASTRAZENECA-2020SE86826

PATIENT
  Sex: Female

DRUGS (3)
  1. SPIRVIA [Concomitant]
     Indication: PULMONARY FIBROSIS
  2. SYMBICORT [Suspect]
     Active Substance: BUDESONIDE\FORMOTEROL FUMARATE DIHYDRATE
     Indication: PULMONARY FIBROSIS
     Dosage: 160/4.5 MCG., 2 PUFFS TWICE A DAY
     Route: 055
     Dates: start: 2018
  3. ROSUVASTATIN. [Suspect]
     Active Substance: ROSUVASTATIN
     Route: 048

REACTIONS (18)
  - Pleural effusion [Unknown]
  - Chest pain [Unknown]
  - Cardiac failure congestive [Unknown]
  - Acute respiratory failure [Unknown]
  - Productive cough [Unknown]
  - Off label use [Not Recovered/Not Resolved]
  - Supraventricular extrasystoles [Unknown]
  - Device delivery system issue [Unknown]
  - Asthma-chronic obstructive pulmonary disease overlap syndrome [Unknown]
  - Pulmonary hypertension [Unknown]
  - Drug dose omission by device [Recovered/Resolved]
  - Acute myocardial infarction [Unknown]
  - Confusional state [Unknown]
  - Dyspnoea [Unknown]
  - Device difficult to use [Unknown]
  - Dysphonia [Not Recovered/Not Resolved]
  - Illness [Unknown]
  - Malignant hypertension [Unknown]
